FAERS Safety Report 10404346 (Version 1)
Quarter: 2014Q1

REPORT INFORMATION
  Report Type: Spontaneous
  Country: US (occurrence: None)
  Receive Date: 20140214
  Receipt Date: 20140214
  Transmission Date: 20141002
  Serious: No
  Sender: FDA-Public Use
  Company Number: A-US2013-92543

PATIENT
  Age: 50 Year
  Sex: Female

DRUGS (12)
  1. OPSUMIT [Suspect]
     Indication: PULMONARY ARTERIAL HYPERTENSION
     Route: 048
     Dates: start: 20131204, end: 20131211
  2. HYOSCYAMINE SULFATE (HYSCYAMINE SULFATE) [Concomitant]
  3. REGLAN (METOCLOPRAMIDE HYDROCHLORIDE) [Concomitant]
  4. SINGULAIR (MONTELUKAST SODIUM) TABLET [Concomitant]
  5. APIRIN (ACETYLSALICYLIC ACID) [Concomitant]
  6. ULTRACEPT (PARACEAMOL, TRAMADOL HYDROCHLORIDE) [Concomitant]
  7. ATENOLOL (ATENOLOL) [Concomitant]
  8. MOBIC (MELOXICAM) [Concomitant]
  9. PLETAL (CILOSTAZOL) [Concomitant]
  10. NIFEDIPINE (NIFEDIPINE) [Concomitant]
  11. CAPTOPRIL (CAPTOPRIL) [Concomitant]
  12. NEXIUM (ESOMEPRAZOLE SODIUM) [Concomitant]

REACTIONS (4)
  - Dyspnoea [None]
  - Swelling [None]
  - Blood count abnormal [None]
  - Condition aggravated [None]
